FAERS Safety Report 7554881-3 (Version None)
Quarter: 2011Q2

REPORT INFORMATION
  Report Type: 
  Country: None (occurrence: None)
  Receive Date: 20110615
  Receipt Date: 20110615
  Transmission Date: 20111010
  Serious: Yes (Other)
  Sender: FDA-Public Use
  Company Number: None

PATIENT
  Age: 60 Year
  Sex: Female

DRUGS (5)
  1. REVLIMID [Suspect]
     Indication: MULTIPLE MYELOMA
     Dosage: 10 MG DAILY X14D/21D ORALLY
     Route: 048
     Dates: start: 20100201
  2. LEVOTHROID [Concomitant]
  3. CITALOPRAM HYDROBROMIDE [Concomitant]
  4. FUROSEMIDE [Concomitant]
  5. PROCHLORPERAZINE TAB [Concomitant]

REACTIONS (4)
  - MUSCLE SPASMS [None]
  - NEUROPATHY PERIPHERAL [None]
  - FATIGUE [None]
  - PAIN IN EXTREMITY [None]
